FAERS Safety Report 20059327 (Version 2)
Quarter: 2021Q4

REPORT INFORMATION
  Report Type: Report from Study
  Country: FR (occurrence: FR)
  Receive Date: 20211111
  Receipt Date: 20211224
  Transmission Date: 20220304
  Serious: Yes (Hospitalization)
  Sender: FDA-Public Use
  Company Number: FR-SERVIER-S21012330

PATIENT

DRUGS (7)
  1. PEGASPARGASE [Suspect]
     Active Substance: PEGASPARGASE
     Indication: Acute lymphocytic leukaemia
     Dosage: 2775 IU, D4
     Route: 042
     Dates: start: 20210917, end: 20210917
  2. TN UNSPECIFIED [Concomitant]
     Indication: Acute lymphocytic leukaemia
     Dosage: 1.6 MG, D1, D8, D15, D22
     Route: 042
     Dates: start: 20210914, end: 20211006
  3. TN UNSPECIFIED [Concomitant]
     Indication: Acute lymphocytic leukaemia
     Dosage: 33 MG, D1, D8, D15, D22
     Route: 042
     Dates: start: 20210914, end: 20211006
  4. TN UNSPECIFIED [Concomitant]
     Indication: Acute lymphocytic leukaemia
     Dosage: 15 MG, D4, D31
     Route: 037
     Dates: start: 20210917, end: 20211025
  5. TN UNSPECIFIED [Concomitant]
     Indication: Acute lymphocytic leukaemia
     Dosage: 11 MG, D1 TO D21
     Route: 048
     Dates: start: 20210914, end: 20211005
  6. TN UNSPECIFIED [Concomitant]
     Indication: Acute lymphocytic leukaemia
     Dosage: 1122 MG, D29
     Route: 042
     Dates: start: 20211022, end: 20211022
  7. TN UNSPECIFIED [Concomitant]
     Indication: Acute lymphocytic leukaemia
     Dosage: 80 MG, D29 TO D42
     Route: 048
     Dates: start: 20211022

REACTIONS (3)
  - Stomatitis [Recovered/Resolved]
  - Herpes simplex [Recovered/Resolved]
  - Pneumonia [Not Recovered/Not Resolved]

NARRATIVE: CASE EVENT DATE: 20211011
